FAERS Safety Report 8270834-4 (Version None)
Quarter: 2012Q2

REPORT INFORMATION
  Report Type: 
  Country: None (occurrence: None)
  Receive Date: 20120410
  Receipt Date: 20120404
  Transmission Date: 20120825
  Serious: Yes (Other)
  Sender: FDA-Public Use
  Company Number: BR-PFIZER INC-2012085388

PATIENT
  Age: 74 Year
  Sex: Male

DRUGS (6)
  1. LOSARTAN [Concomitant]
     Indication: CARDIAC DISORDER
     Dosage: UNK
  2. VENLAFAXINE [Concomitant]
     Indication: FEELING OF RELAXATION
  3. METFORMIN [Concomitant]
     Indication: DIABETES MELLITUS
  4. FOLIC ACID [Concomitant]
     Indication: ANAEMIA
     Dosage: UNK
  5. VENLAFAXINE [Concomitant]
     Indication: DIABETIC NEUROPATHY
  6. LYRICA [Suspect]
     Dosage: 150 MG
     Route: 048
     Dates: end: 20120301

REACTIONS (9)
  - MOTOR DYSFUNCTION [None]
  - COUGH [None]
  - PERICARDIAL EFFUSION [None]
  - DYSSTASIA [None]
  - SPEECH DISORDER [None]
  - FLUID RETENTION [None]
  - BALANCE DISORDER [None]
  - PULMONARY OEDEMA [None]
  - FEELING ABNORMAL [None]
